FAERS Safety Report 8884132 (Version 2)
Quarter: 2012Q4

REPORT INFORMATION
  Report Type: 
  Country: US (occurrence: US)
  Receive Date: 20121104
  Receipt Date: 20121204
  Transmission Date: 20130627
  Serious: No
  Sender: FDA-Public Use
  Company Number: US-ASTRAZENECA-2012SE80960

PATIENT
  Age: 71 Year
  Sex: Female

DRUGS (2)
  1. SYMBICORT [Suspect]
     Dosage: 160/4.5 TWO TIMES A DAY
     Route: 055
     Dates: start: 201010, end: 201202
  2. SYMBICORT [Suspect]
     Dosage: 80/4.5 2 PUFFS BID
     Route: 055
     Dates: start: 201202

REACTIONS (3)
  - Pain [Unknown]
  - Dizziness [Unknown]
  - Off label use [Unknown]
